FAERS Safety Report 8528957 (Version 2)
Quarter: 2012Q4

REPORT INFORMATION
  Report Type: 
  Country: US (occurrence: US)
  Receive Date: 20120425
  Receipt Date: 20120924
  Transmission Date: 20130627
  Serious: Yes (Other)
  Sender: FDA-Public Use
  Company Number: US-BAYER-2012-038179

PATIENT
  Age: 20 Year
  Sex: Female
  Weight: 83.9 kg

DRUGS (2)
  1. YAZ [Suspect]
     Dosage: UNK
     Dates: start: 2001, end: 2007
  2. YASMIN [Suspect]
     Dosage: UNK
     Dates: start: 2001, end: 2007

REACTIONS (10)
  - Deep vein thrombosis [None]
  - Injury [None]
  - Arrhythmia [None]
  - Menorrhagia [None]
  - Menstrual disorder [None]
  - Loss of consciousness [None]
  - General physical health deterioration [None]
  - Emotional distress [None]
  - Pain [None]
  - Anxiety [None]
